FAERS Safety Report 13346849 (Version 2)
Quarter: 2017Q1

REPORT INFORMATION
  Report Type: Spontaneous
  Country: CA (occurrence: CA)
  Receive Date: 20170317
  Receipt Date: 20170321
  Transmission Date: 20170428
  Serious: Yes (Hospitalization, Disabling, Other)
  Sender: FDA-Public Use
  Company Number: CA-PFIZER INC-2017111962

PATIENT
  Age: 9 Year
  Sex: Female
  Weight: 36 kg

DRUGS (5)
  1. CEENU [Concomitant]
     Active Substance: LOMUSTINE
     Dosage: UNK
  2. VINCRISTINE SULFATE. [Suspect]
     Active Substance: VINCRISTINE SULFATE
     Indication: MEDULLOBLASTOMA
     Dosage: 1.8 MG, UNK
     Route: 042
  3. CISPLATIN. [Suspect]
     Active Substance: CISPLATIN
     Indication: MEDULLOBLASTOMA
     Dosage: 82 MG, UNK
     Route: 042
  4. CEENU [Concomitant]
     Active Substance: LOMUSTINE
     Dosage: UNK
  5. CYCLOPHOSPHAMIDE. [Concomitant]
     Active Substance: CYCLOPHOSPHAMIDE
     Dosage: UNK
     Route: 042

REACTIONS (1)
  - Neuropathy peripheral [Unknown]
